FAERS Safety Report 14254805 (Version 1)
Quarter: 2017Q4

REPORT INFORMATION
  Report Type: Spontaneous
  Country: BR (occurrence: BR)
  Receive Date: 20171206
  Receipt Date: 20171206
  Transmission Date: 20180321
  Serious: Yes (Hospitalization, Other)
  Sender: FDA-Public Use
  Company Number: BR-ASTRAZENECA-2017SF21966

PATIENT
  Age: 42 Year
  Sex: Female

DRUGS (1)
  1. DAPAGLIFLOZIN. [Suspect]
     Active Substance: DAPAGLIFLOZIN
     Indication: TYPE 1 DIABETES MELLITUS
     Route: 048

REACTIONS (2)
  - Ketoacidosis [Not Recovered/Not Resolved]
  - Haemorrhagic transformation stroke [Not Recovered/Not Resolved]
